FAERS Safety Report 5709442-5 (Version None)
Quarter: 2008Q2

REPORT INFORMATION
  Report Type: 
  Country: None (occurrence: None)
  Receive Date: 20080418
  Receipt Date: 20080408
  Transmission Date: 20081010
  Serious: Yes (Hospitalization)
  Sender: FDA-Public Use
  Company Number: FR-JNJFOC-20080402076

PATIENT
  Sex: Male

DRUGS (3)
  1. EPITOMAX [Suspect]
     Route: 048
  2. EPITOMAX [Suspect]
     Indication: TREMOR
     Route: 048
  3. MYSOLINE [Concomitant]
     Route: 048

REACTIONS (3)
  - DERMATITIS EXFOLIATIVE [None]
  - FACE OEDEMA [None]
  - PRURITUS [None]
